FAERS Safety Report 10237245 (Version 2)
Quarter: 2014Q2

REPORT INFORMATION
  Report Type: Spontaneous
  Country: FI (occurrence: FI)
  Receive Date: 20140613
  Receipt Date: 20140619
  Transmission Date: 20141212
  Serious: Yes (Other)
  Sender: FDA-Public Use
  Company Number: FI-GILEAD-2014-0105113

PATIENT
  Age: 56 Year
  Sex: Female

DRUGS (5)
  1. STRIBILD [Suspect]
     Indication: HIV INFECTION
     Dosage: 1 DF, QD
     Route: 048
     Dates: start: 20130816, end: 20140110
  2. ATRIPLA [Concomitant]
     Indication: HIV INFECTION
     Dosage: UNK
     Route: 065
     Dates: start: 20110926, end: 201308
  3. ATRIPLA [Concomitant]
     Dosage: UNK
     Route: 065
     Dates: start: 20140110, end: 20140204
  4. DUACT [Concomitant]
     Indication: PRODUCT USED FOR UNKNOWN INDICATION
     Dosage: UNK
     Route: 048
     Dates: start: 20131229, end: 20140108
  5. CODESAN COMP [Concomitant]
     Indication: PRODUCT USED FOR UNKNOWN INDICATION
     Dosage: UNK
     Route: 048
     Dates: start: 20131229, end: 20140108

REACTIONS (2)
  - Renal tubular disorder [Recovered/Resolved]
  - Proteinuria [Recovered/Resolved]
